FAERS Safety Report 8177114 (Version 5)
Quarter: 2012Q4

REPORT INFORMATION
  Report Type: 
  Country: FR (occurrence: FR)
  Receive Date: 20111012
  Receipt Date: 20121010
  Transmission Date: 20130627
  Serious: Yes (Other)
  Sender: FDA-Public Use
  Company Number: FR-SANOFI-AVENTIS-2011SA063823

PATIENT
  Age: 43 None

DRUGS (2)
  1. ARAVA [Suspect]
     Indication: RHEUMATOID ARTHRITIS
     Route: 050
     Dates: start: 200709
  2. ETANERCEPT [Concomitant]
     Indication: RHEUMATOID ARTHRITIS
     Route: 065
     Dates: start: 200802

REACTIONS (3)
  - Shoulder dystocia [Recovered/Resolved]
  - Foetal distress syndrome [Recovered/Resolved]
  - Exposure via father [Unknown]
